FAERS Safety Report 14685262 (Version 1)
Quarter: 2018Q1

REPORT INFORMATION
  Report Type: Spontaneous
  Country: US (occurrence: US)
  Receive Date: 20180327
  Receipt Date: 20180327
  Transmission Date: 20180509
  Serious: No
  Sender: FDA-Public Use
  Company Number: US-NATCO PHARMA-2018NAT00001

PATIENT
  Age: 73 Year
  Sex: Female

DRUGS (8)
  1. EVISTA [Concomitant]
     Active Substance: RALOXIFENE HYDROCHLORIDE
  2. PRAVASTATIN. [Concomitant]
     Active Substance: PRAVASTATIN
  3. OMEPRAZOLE. [Concomitant]
     Active Substance: OMEPRAZOLE
  4. ORENCIA [Concomitant]
     Active Substance: ABATACEPT
  5. FOLIC ACID. [Concomitant]
     Active Substance: FOLIC ACID
  6. PROPANOLOL [Concomitant]
     Active Substance: PROPRANOLOL HYDROCHLORIDE
  7. METHOTREXATE. [Concomitant]
     Active Substance: METHOTREXATE
  8. OSELTAMIVIR PHOSPHATE. [Suspect]
     Active Substance: OSELTAMIVIR PHOSPHATE
     Dosage: 75 MG, 1X/DAY
     Dates: start: 20171231, end: 20180101

REACTIONS (2)
  - Palpitations [Recovered/Resolved]
  - Bradycardia [Recovered/Resolved]

NARRATIVE: CASE EVENT DATE: 20171231
